FAERS Safety Report 25916565 (Version 3)
Quarter: 2025Q4

REPORT INFORMATION
  Report Type: Report from Study
  Country: US (occurrence: US)
  Receive Date: 20251014
  Receipt Date: 20251023
  Transmission Date: 20260118
  Serious: Yes (Other)
  Sender: ABBVIE
  Company Number: US-ABBVIE-6499676

PATIENT
  Age: 54 Year
  Sex: Female

DRUGS (2)
  1. HUMIRA [Suspect]
     Active Substance: ADALIMUMAB
     Indication: Colitis ulcerative
     Dosage: END DATE 2025, CITRATE FREE
     Route: 058
     Dates: start: 20250324
  2. HUMIRA [Suspect]
     Active Substance: ADALIMUMAB
     Indication: Crohn^s disease
     Dosage: DISCONTINUED IN OCT 2025?CITRATE FREE
     Route: 058
     Dates: start: 20251006

REACTIONS (10)
  - Systemic lupus erythematosus [Unknown]
  - Constipation [Unknown]
  - Abdominal distension [Recovered/Resolved]
  - Weight decreased [Unknown]
  - Product quality issue [Unknown]
  - Rash [Unknown]
  - Generalised oedema [Recovered/Resolved]
  - Large intestine infection [Unknown]
  - Colitis [Unknown]
  - Diverticulitis [Unknown]

NARRATIVE: CASE EVENT DATE: 20250101
